FAERS Safety Report 8635067 (Version 2)
Quarter: 2012Q4

REPORT INFORMATION
  Report Type: 
  Country: US (occurrence: US)
  Receive Date: 20120626
  Receipt Date: 20121019
  Transmission Date: 20130627
  Serious: Yes (Hospitalization, Other)
  Sender: FDA-Public Use
  Company Number: US-BAYER-2012-061850

PATIENT
  Age: 77 Year
  Sex: Female
  Weight: 53.97 kg

DRUGS (9)
  1. CIPRO [Suspect]
     Indication: FOOD POISONING
     Dosage: 400 mg, QD
     Route: 042
     Dates: start: 20120401, end: 20120402
  2. CIPRO [Suspect]
     Indication: ENTERITIS
     Dosage: 400 mg, QD
     Route: 048
     Dates: start: 20120402, end: 20120416
  3. CIPRO [Suspect]
     Indication: WHITE BLOOD CELL COUNT INCREASED
  4. FLAGYL [Suspect]
     Indication: FOOD POISONING
     Dosage: unknown dose
     Route: 042
     Dates: start: 20120401, end: 201204
  5. FLAGYL [Suspect]
     Indication: BACTERIAL INFECTION
     Dosage: UNK, TID
     Route: 048
     Dates: start: 20120508, end: 201205
  6. LIPITOR [Concomitant]
     Indication: BLOOD CHOLESTEROL INCREASED
     Dosage: 10 mg
  7. UNSPECIFIED MEDICATION [Concomitant]
     Indication: HYPERTENSION
     Dosage: UNK
  8. FAMOTIDINE [Concomitant]
  9. SOLU CORTEF [Concomitant]

REACTIONS (7)
  - Loss of consciousness [Unknown]
  - Vomiting [Unknown]
  - Visual impairment [Not Recovered/Not Resolved]
  - Adverse event [Unknown]
  - Colitis [Unknown]
  - Bacterial infection [Unknown]
  - Tendonitis [Not Recovered/Not Resolved]
